FAERS Safety Report 9028303 (Version 2)
Quarter: 2013Q1

REPORT INFORMATION
  Report Type: Spontaneous
  Country: US (occurrence: US)
  Receive Date: 20130124
  Receipt Date: 20130201
  Transmission Date: 20140127
  Serious: No
  Sender: FDA-Public Use
  Company Number: US-PFIZER INC-2013028811

PATIENT
  Sex: Female

DRUGS (4)
  1. GEODON [Suspect]
     Indication: SCHIZOAFFECTIVE DISORDER
     Dosage: 40MG, UNK
     Dates: start: 20051010
  2. GEODON [Suspect]
     Dosage: 80 MG AT BREAKFAST AND 80MG AT 8PM
     Dates: start: 20051128
  3. RISPERDAL [Concomitant]
     Indication: SCHIZOAFFECTIVE DISORDER
     Dosage: 2 MG, 1X/DAY (AT BEDTIME)
     Dates: start: 1995, end: 20051128
  4. RISPERDAL [Concomitant]
     Dosage: TAPERED OFF BY 0.5MG LESS EVERY OTHER WEEK

REACTIONS (4)
  - Therapeutic response unexpected [Unknown]
  - Affect lability [Unknown]
  - Libido increased [Unknown]
  - Weight decreased [Unknown]
